FAERS Safety Report 8023800-8 (Version None)
Quarter: 2011Q4

REPORT INFORMATION
  Report Type: 
  Country: None (occurrence: None)
  Receive Date: 20111130
  Receipt Date: 20110112
  Transmission Date: 20120403
  Serious: Yes (Hospitalization)
  Sender: FDA-Public Use
  Company Number: 321495

PATIENT
  Age: 55 Year
  Sex: Female
  Weight: 89.8 kg

DRUGS (10)
  1. HYDROCHLOROTHIAZIDE [Concomitant]
  2. NOVOLOG [Suspect]
     Indication: TYPE 1 DIABETES MELLITUS
     Dosage: SLIDING SCALE, PRN, SUBCUTAN.-PUMP
  3. SIMVASTATIN [Concomitant]
  4. ZOFRAN /0095530/ (ONDANSETRON) [Concomitant]
  5. BENAZEPRIL HYDROCHLORIDE [Concomitant]
  6. WELLBUTRIN [Concomitant]
  7. VALTREX [Concomitant]
  8. ASPIRIN [Concomitant]
  9. CITALOPRAM HYDROBROMIDE [Concomitant]
  10. SYNTHROID [Concomitant]

REACTIONS (1)
  - BLOOD GLUCOSE INCREASED [None]
